FAERS Safety Report 6685466-9 (Version None)
Quarter: 2010Q2

REPORT INFORMATION
  Report Type: 
  Country: None (occurrence: None)
  Receive Date: 20100419
  Receipt Date: 20100407
  Transmission Date: 20101027
  Serious: Yes (Hospitalization)
  Sender: FDA-Public Use
  Company Number: US-BIOGENIDEC-2010BI002225

PATIENT
  Age: 36 Year
  Sex: Female

DRUGS (1)
  1. AVONEX [Suspect]
     Indication: MULTIPLE SCLEROSIS
     Route: 030
     Dates: start: 20100113, end: 20100101

REACTIONS (5)
  - CENTRAL NERVOUS SYSTEM LESION [None]
  - HEMIPARESIS [None]
  - INFLUENZA [None]
  - MULTIPLE SCLEROSIS [None]
  - PAIN [None]
